FAERS Safety Report 7154460-6 (Version None)
Quarter: 2010Q4

REPORT INFORMATION
  Report Type: 
  Country: None (occurrence: None)
  Receive Date: 20101213
  Receipt Date: 20101130
  Transmission Date: 20110411
  Serious: Yes (Other)
  Sender: FDA-Public Use
  Company Number: RU-GENZYME-FLUD-1000501

PATIENT
  Age: 11 Year
  Sex: Male

DRUGS (13)
  1. FLUDARA [Suspect]
     Indication: BONE MARROW CONDITIONING REGIMEN
     Dosage: 150 MG/M2, DAYS -6,-5,-4,-3,-2
     Route: 065
  2. FLUDARA [Suspect]
     Indication: PROPHYLAXIS AGAINST GRAFT VERSUS HOST DISEASE
  3. CYCLOPHOSPHAMIDE [Suspect]
     Indication: BONE MARROW CONDITIONING REGIMEN
     Dosage: 100 MG/KG, DAYS -5,-4,-3,-2
     Route: 065
  4. CYCLOPHOSPHAMIDE [Suspect]
     Indication: PROPHYLAXIS AGAINST GRAFT VERSUS HOST DISEASE
  5. THYMOGLOBULIN [Suspect]
     Indication: BONE MARROW CONDITIONING REGIMEN
     Dosage: 10 MG/KG, DAYS -4,-3,-2,-1
     Route: 065
  6. THYMOGLOBULIN [Suspect]
     Indication: PROPHYLAXIS AGAINST GRAFT VERSUS HOST DISEASE
  7. TACROLIMUS [Concomitant]
     Indication: PROPHYLAXIS AGAINST GRAFT VERSUS HOST DISEASE
     Dosage: 200-400 MG/ML, FROM DAY -1
     Route: 042
  8. MYCOPHENOLATE MOFETIL [Concomitant]
     Indication: PROPHYLAXIS AGAINST GRAFT VERSUS HOST DISEASE
     Dosage: 30 MG/KG, DAY +1
     Route: 065
  9. AMOXICILLIN [Concomitant]
     Indication: ANTIBIOTIC PROPHYLAXIS
     Dosage: 30 MG/KG, QD
     Route: 065
  10. CIPROFLOXACIN [Concomitant]
     Indication: ANTIBIOTIC PROPHYLAXIS
     Dosage: 15 MG/KG, QD
     Route: 065
  11. TRIMETHOPRIM + SULFAMETHOXAZOLE [Concomitant]
     Indication: PROPHYLAXIS
     Dosage: DAYS -10,-9,-8 AND -3,-2,-1
     Route: 065
  12. TRIMETHOPRIM + SULFAMETHOXAZOLE [Concomitant]
     Dosage: STARTING DAY +21
     Route: 065
  13. ACYCLOVIR [Concomitant]
     Indication: ANTIVIRAL PROPHYLAXIS
     Dosage: STARTING DAY +1
     Route: 065

REACTIONS (5)
  - ACUTE GRAFT VERSUS HOST DISEASE [None]
  - AUTOIMMUNE LYMPHOPROLIFERATIVE SYNDROME [None]
  - CHRONIC GRAFT VERSUS HOST DISEASE [None]
  - EPSTEIN-BARR VIRUS TEST POSITIVE [None]
  - HISTIOCYTOSIS HAEMATOPHAGIC [None]
